FAERS Safety Report 19483770 (Version 2)
Quarter: 2021Q3

REPORT INFORMATION
  Report Type: Spontaneous
  Country: IT (occurrence: IT)
  Receive Date: 20210701
  Receipt Date: 20210727
  Transmission Date: 20211014
  Serious: Yes (Hospitalization, Other)
  Sender: FDA-Public Use
  Company Number: IT-SA-2021SA215578

PATIENT
  Age: 18 Year
  Sex: Female
  Weight: 50 kg

DRUGS (3)
  1. EBASTINE [Interacting]
     Active Substance: EBASTINE
     Indication: RHINITIS
     Dosage: 10 MG, QD
     Route: 048
     Dates: start: 20210507, end: 20210621
  2. DUPIXENT [Interacting]
     Active Substance: DUPILUMAB
     Dosage: UNK
     Dates: end: 20210619
  3. DUPIXENT [Suspect]
     Active Substance: DUPILUMAB
     Indication: DERMATITIS ATOPIC
     Dosage: 600 MG
     Route: 058
     Dates: start: 20210604

REACTIONS (5)
  - Drug interaction [Unknown]
  - Malaise [Not Recovered/Not Resolved]
  - Musculoskeletal pain [Recovering/Resolving]
  - Arthralgia [Recovering/Resolving]
  - Syncope [Recovering/Resolving]

NARRATIVE: CASE EVENT DATE: 2021
